FAERS Safety Report 11702356 (Version 1)
Quarter: 2015Q4

REPORT INFORMATION
  Report Type: Spontaneous
  Country: US (occurrence: US)
  Receive Date: 20151105
  Receipt Date: 20151105
  Transmission Date: 20160304
  Serious: No
  Sender: FDA-Public Use
  Company Number: US-WATSON-2014-28034

PATIENT
  Age: 50 Year
  Sex: Male

DRUGS (1)
  1. CLONAZEPAM (AELLC) [Suspect]
     Active Substance: CLONAZEPAM
     Indication: PRODUCT USED FOR UNKNOWN INDICATION
     Dosage: 1 MG, TID
     Route: 048
     Dates: start: 20141113

REACTIONS (3)
  - Lethargy [Unknown]
  - Drug effect increased [Recovered/Resolved]
  - Somnolence [None]

NARRATIVE: CASE EVENT DATE: 201411
